FAERS Safety Report 18840090 (Version 3)
Quarter: 2021Q1

REPORT INFORMATION
  Report Type: Report from Study
  Country: None (occurrence: US)
  Receive Date: 20210204
  Receipt Date: 20210305
  Transmission Date: 20210419
  Serious: Yes (Other)
  Sender: FDA-Public Use
  Company Number: US-ABBVIE-21K-163-3759190-00

PATIENT
  Sex: Male
  Weight: 68.1 kg

DRUGS (3)
  1. LISINOPRIL. [Concomitant]
     Active Substance: LISINOPRIL
     Indication: PRODUCT USED FOR UNKNOWN INDICATION
  2. POTASSIUM [Concomitant]
     Active Substance: POTASSIUM
     Indication: PRODUCT USED FOR UNKNOWN INDICATION
  3. CREON [Suspect]
     Active Substance: PANCRELIPASE AMYLASE\PANCRELIPASE LIPASE\PANCRELIPASE PROTEASE
     Indication: DIGESTIVE ENZYME ABNORMAL
     Dosage: 2 TO 3 CAPSULES WITH EVERY MEALS
     Route: 048
     Dates: start: 2013

REACTIONS (7)
  - Body height decreased [Recovering/Resolving]
  - Exostosis [Recovered/Resolved]
  - Spinal osteoarthritis [Not Recovered/Not Resolved]
  - Diarrhoea [Recovered/Resolved]
  - Joint dislocation [Recovered/Resolved]
  - Food intolerance [Unknown]
  - Weight decreased [Not Recovered/Not Resolved]

NARRATIVE: CASE EVENT DATE: 2013
